FAERS Safety Report 9848298 (Version 1)
Quarter: 2013Q4

REPORT INFORMATION
  Report Type: Spontaneous
  Country: US (occurrence: None)
  Receive Date: 20131226
  Receipt Date: 20131226
  Transmission Date: 20140711
  Serious: Yes (Other)
  Sender: FDA-Public Use
  Company Number: PHEH2013US015339

PATIENT
  Sex: Male

DRUGS (1)
  1. ARCAPTA (INDACATEROL) UNKNOWN [Suspect]

REACTIONS (2)
  - Hypoacusis [None]
  - Dyspnoea [None]
